FAERS Safety Report 16912931 (Version 2)
Quarter: 2019Q4

REPORT INFORMATION
  Report Type: Spontaneous
  Country: DE (occurrence: DE)
  Receive Date: 20191014
  Receipt Date: 20191018
  Transmission Date: 20200122
  Serious: Yes (Hospitalization)
  Sender: FDA-Public Use
  Company Number: DE-TEVA-2019-DE-1119967

PATIENT
  Age: 78 Year
  Sex: Male
  Weight: 79 kg

DRUGS (14)
  1. XARELTO [Concomitant]
     Active Substance: RIVAROXABAN
     Dosage: 1 DOSAGE FORMS
  2. VIGANTOLETTEN 1000 [Concomitant]
     Dosage: 1 DOSAGE FORMS
  3. RELVAR 92/22 [Concomitant]
     Dosage: 1 PACK
     Dates: start: 201801
  4. FINASTERID 5 MG [Concomitant]
     Dosage: 1 DOSAGE FORMS
  5. COFFEIN 0,2 [Concomitant]
     Dosage: 0.5 DOSAGE FORMS
  6. PROLIA [Suspect]
     Active Substance: DENOSUMAB
     Dates: start: 20180402, end: 20181006
  7. ATORVASTATIN 20MG [Concomitant]
     Active Substance: ATORVASTATIN
     Dosage: 1 DOSAGE FORMS
  8. CANDESARTAN 4MG [Concomitant]
     Active Substance: CANDESARTAN
     Dosage: 1 DOSAGE FORMS
  9. AMIODARON 200 [Suspect]
     Active Substance: AMIODARONE
     Dates: start: 20180116
  10. ACLASTA [Concomitant]
     Active Substance: ZOLEDRONIC ACID
     Dosage: 4 DOSAGE FORMS
  11. BISOPROLOL 2,5MG [Concomitant]
     Dosage: 1 DOSAGE FORMS
  12. LERCANIDIPIN 10MG [Concomitant]
     Dosage: 1 DOSAGE FORMS
  13. TAMSULOSIN 0,4 MG [Concomitant]
     Dosage: 1 DOSAGE FORMS
  14. FORSTEO [Suspect]
     Active Substance: TERIPARATIDE
     Dosage: 1 DOSAGE FORMS DAILY; DAILY DOSE: 1 DF DOSAGE FORM EVERY DAYS
     Route: 058
     Dates: start: 20180811, end: 20181222

REACTIONS (2)
  - Dyspnoea [Unknown]
  - Atypical pneumonia [Unknown]

NARRATIVE: CASE EVENT DATE: 201812
